FAERS Safety Report 17229333 (Version 1)
Quarter: 2019Q4

REPORT INFORMATION
  Report Type: Spontaneous
  Country: US (occurrence: US)
  Receive Date: 20191210
  Receipt Date: 20191210
  Transmission Date: 20200122
  Serious: No
  Sender: FDA-Public Use
  Company Number: None

PATIENT
  Age: 63 Year
  Sex: Male

DRUGS (1)
  1. VOSEVI [Suspect]
     Active Substance: SOFOSBUVIR\VELPATASVIR\VOXILAPREVIR
     Dosage: ?          OTHER DOSE:400/100/100MG;?
     Route: 048
     Dates: start: 20191023

REACTIONS (2)
  - Diarrhoea [None]
  - Dyspepsia [None]

NARRATIVE: CASE EVENT DATE: 20191023
